FAERS Safety Report 18419176 (Version 1)
Quarter: 2020Q4

REPORT INFORMATION
  Report Type: Report from Study
  Country: TR (occurrence: TR)
  Receive Date: 20201023
  Receipt Date: 20201023
  Transmission Date: 20210114
  Serious: Yes (Hospitalization)
  Sender: FDA-Public Use
  Company Number: TR-ELI_LILLY_AND_COMPANY-TR202010008172

PATIENT
  Sex: Female

DRUGS (10)
  1. BETASERC [BETAHISTINE HYDROCHLORIDE] [Concomitant]
     Indication: DIZZINESS
     Dosage: 1 DOSAGE FORM, DAILY
  2. DESAL [FUROSEMIDE] [Concomitant]
     Active Substance: FUROSEMIDE
     Indication: DIURETIC THERAPY
     Dosage: 1 DOSAGE FORM, BID
  3. DELTACORTRIL [PREDNISOLONE] [Concomitant]
     Indication: ARTHRALGIA
     Dosage: UNK UNK, DAILY
  4. DEVIT 3 [Concomitant]
     Active Substance: CHOLECALCIFEROL
     Indication: PRODUCT USED FOR UNKNOWN INDICATION
     Dosage: UNK UNK, DAILY (10-15 DROPS)
  5. DAFLON [DIOSMIN] [Concomitant]
     Active Substance: DIOSMIN
     Indication: PERIPHERAL SWELLING
     Dosage: 1 DOSAGE FORM, BID
  6. DUPHALAC [Concomitant]
     Active Substance: LACTULOSE
     Indication: INFREQUENT BOWEL MOVEMENTS
     Dosage: 1 DOSAGE FORM, DAILY
  7. ARLEC [Concomitant]
     Active Substance: CARVEDILOL
     Indication: CARDIAC DISORDER
     Dosage: 1 DOSAGE FORM, BID
  8. BENEDAY [Concomitant]
     Indication: PRODUCT USED FOR UNKNOWN INDICATION
     Dosage: UNK UNK, DAILY
  9. SPASMOMEN [Concomitant]
     Active Substance: OTILONIUM BROMIDE
     Indication: ABDOMINAL DISCOMFORT
     Dosage: 1 DOSAGE FORM, DAILY
  10. FORSTEO [Suspect]
     Active Substance: TERIPARATIDE
     Indication: OSTEOPOROSIS
     Dosage: 1 DOSAGE FORM, DAILY
     Route: 065
     Dates: start: 20190830

REACTIONS (1)
  - Anaemia [Unknown]
